FAERS Safety Report 25594508 (Version 3)
Quarter: 2025Q4

REPORT INFORMATION
  Report Type: Report from Study
  Country: CN (occurrence: CN)
  Receive Date: 20250723
  Receipt Date: 20251006
  Transmission Date: 20260118
  Serious: Yes (Hospitalization)
  Sender: ROCHE
  Company Number: CN-ROCHE-10000114015

PATIENT
  Age: 32 Year
  Sex: Female
  Weight: 48 kg

DRUGS (4)
  1. ATEZOLIZUMAB [Suspect]
     Active Substance: ATEZOLIZUMAB
     Indication: Hepatic cancer
     Route: 042
     Dates: start: 20241014, end: 202507
  2. BEVACIZUMAB [Suspect]
     Active Substance: BEVACIZUMAB
     Indication: Hepatic cancer
     Route: 042
     Dates: end: 202507
  3. METHYLPREDNISOLONE HEMISUCCINATE [Concomitant]
     Active Substance: METHYLPREDNISOLONE HEMISUCCINATE
     Route: 042
     Dates: start: 20250304, end: 202507
  4. ENTECAVIR [Concomitant]
     Active Substance: ENTECAVIR
     Indication: Hepatitis B

REACTIONS (11)
  - Vaginal haemorrhage [Recovered/Resolved]
  - Oligomenorrhoea [Recovered/Resolved]
  - Menstruation delayed [Recovered/Resolved]
  - Gingival swelling [Recovered/Resolved]
  - Asthenia [Recovered/Resolved]
  - Gingival bleeding [Recovered/Resolved]
  - Rash [Recovered/Resolved]
  - Hepatic mass [Not Recovered/Not Resolved]
  - Hepatic cancer metastatic [Not Recovered/Not Resolved]
  - Alpha 1 foetoprotein increased [Not Recovered/Not Resolved]
  - Drug ineffective [Unknown]

NARRATIVE: CASE EVENT DATE: 20241015
